FAERS Safety Report 7979205-9 (Version None)
Quarter: 2011Q4

REPORT INFORMATION
  Report Type: 
  Country: None (occurrence: None)
  Receive Date: 20111214
  Receipt Date: 20111206
  Transmission Date: 20120403
  Serious: Yes (Other)
  Sender: FDA-Public Use
  Company Number: US-BAYER-2011-116941

PATIENT
  Age: 41 Year
  Sex: Female

DRUGS (2)
  1. MIRENA [Suspect]
     Indication: MENORRHAGIA
     Dosage: DAILY DOSE 20 ?G
     Route: 015
     Dates: start: 20070101, end: 20110401
  2. MIRENA [Suspect]
     Dosage: DAILY DOSE 20 ?G
     Route: 015
     Dates: start: 20110506, end: 20111107

REACTIONS (2)
  - VAGINAL HAEMORRHAGE [None]
  - DEVICE EXPULSION [None]
